FAERS Safety Report 20041704 (Version 1)
Quarter: 2021Q4

REPORT INFORMATION
  Report Type: Spontaneous
  Country: JP (occurrence: JP)
  Receive Date: 20211108
  Receipt Date: 20211108
  Transmission Date: 20220304
  Serious: Yes (Hospitalization, Other)
  Sender: FDA-Public Use
  Company Number: None

PATIENT
  Age: 51 Year
  Sex: Female

DRUGS (2)
  1. PREDNISOLONE [Suspect]
     Active Substance: PREDNISOLONE
     Indication: Immune thrombocytopenia
     Dosage: 20 MILLIGRAM PER DAY
     Route: 048
  2. PREDNISOLONE [Suspect]
     Active Substance: PREDNISOLONE
     Indication: Embolism venous
     Dosage: 1 MILLIGRAM/KILOGRAM, DOSE INCREASED
     Route: 048

REACTIONS (3)
  - Pulmonary embolism [Recovered/Resolved]
  - Condition aggravated [Recovered/Resolved]
  - Deep vein thrombosis [Recovered/Resolved]
